FAERS Safety Report 5247643-3 (Version None)
Quarter: 2007Q1

REPORT INFORMATION
  Report Type: 
  Country: None (occurrence: None)
  Receive Date: 20070227
  Receipt Date: 20070215
  Transmission Date: 20070707
  Serious: Yes (Life-Threatening, Hospitalization, Other)
  Sender: FDA-Public Use
  Company Number: US-NOVOPROD-260870

PATIENT
  Sex: Male
  Weight: 45.805 kg

DRUGS (2)
  1. NOVOLOG [Suspect]
     Indication: DIABETES MELLITUS INSULIN-DEPENDENT
     Dosage: 19 IU, QD
     Route: 058
     Dates: start: 20050101
  2. NOVOLIN N [Concomitant]
     Indication: DIABETES MELLITUS INSULIN-DEPENDENT
     Dosage: 38 IU, QD
     Route: 058
     Dates: start: 20050101

REACTIONS (4)
  - EPILEPSY [None]
  - HYPERTENSION [None]
  - HYPOGLYCAEMIC SEIZURE [None]
  - RENAL FAILURE [None]
